FAERS Safety Report 9813656 (Version 1)
Quarter: 2014Q1

REPORT INFORMATION
  Report Type: Spontaneous
  Country: US (occurrence: None)
  Receive Date: 20140109
  Receipt Date: 20140109
  Transmission Date: 20141002
  Serious: Yes (Hospitalization)
  Sender: FDA-Public Use
  Company Number: None

PATIENT
  Age: 81 Year
  Sex: Male
  Weight: 85.1 kg

DRUGS (3)
  1. DABIGATRAN [Suspect]
     Indication: ATRIAL FIBRILLATION
     Dosage: 1 TABLET BID  ORAL
     Route: 048
     Dates: start: 20131031, end: 20131103
  2. CLOPIDOGREL [Concomitant]
  3. ASPIRIN\DIPYRIDAMOLE [Concomitant]

REACTIONS (1)
  - Haematochezia [None]
